FAERS Safety Report 7333708-9 (Version None)
Quarter: 2011Q1

REPORT INFORMATION
  Report Type: 
  Country: None (occurrence: None)
  Receive Date: 20110306
  Receipt Date: 20110222
  Transmission Date: 20110831
  Serious: Yes (Death, Hospitalization)
  Sender: FDA-Public Use
  Company Number: JP-BAYER-2011-015598

PATIENT
  Age: 82 Year
  Sex: Female
  Weight: 47 kg

DRUGS (1)
  1. ASPIRIN [Suspect]
     Indication: ANTICOAGULANT THERAPY
     Route: 048

REACTIONS (4)
  - ARTERIAL INJURY [None]
  - PNEUMONIA [None]
  - TRACHEAL HAEMORRHAGE [None]
  - CIRCULATORY COLLAPSE [None]
